FAERS Safety Report 4585858-8 (Version None)
Quarter: 2005Q1

REPORT INFORMATION
  Report Type: 
  Country: None (occurrence: None)
  Receive Date: 20050217
  Receipt Date: 20050210
  Transmission Date: 20050727
  Serious: Yes (Hospitalization)
  Sender: FDA-Public Use
  Company Number: US-GLAXOSMITHKLINE-A0544967A

PATIENT
  Age: 81 Year
  Sex: Female

DRUGS (9)
  1. PAXIL [Suspect]
     Dosage: 10MG PER DAY
     Route: 048
     Dates: start: 20050101, end: 20050101
  2. CEFAZOLIN [Concomitant]
  3. HEPARIN [Concomitant]
  4. SIMETHICONE [Concomitant]
  5. SENNA [Concomitant]
  6. SEROQUEL [Concomitant]
  7. VICODIN [Concomitant]
  8. TYLENOL (CAPLET) [Concomitant]
  9. LEVOTHROID [Concomitant]

REACTIONS (3)
  - DIPLEGIA [None]
  - FALL [None]
  - PARALYSIS [None]
